FAERS Safety Report 5494057-7 (Version None)
Quarter: 2007Q4

REPORT INFORMATION
  Report Type: 
  Country: None (occurrence: None)
  Receive Date: 20071022
  Receipt Date: 20071016
  Transmission Date: 20080405
  Serious: Yes (Death)
  Sender: FDA-Public Use
  Company Number: 430005N07USA

PATIENT
  Age: 63 Year
  Sex: Male

DRUGS (35)
  1. NOVANTRONE [Suspect]
     Dosage: 12, 12.2, 12, 12, 12.5, 12.1, 12.4, 12.2, 12.1
     Dates: start: 20010109, end: 20030122
  2. NOVANTRONE [Suspect]
     Dosage: 12, 12.2, 12, 12, 12.5, 12.1, 12.4, 12.2, 12.1
     Dates: start: 20010404
  3. NOVANTRONE [Suspect]
     Dosage: 12, 12.2, 12, 12, 12.5, 12.1, 12.4, 12.2, 12.1
     Dates: start: 20010711
  4. NOVANTRONE [Suspect]
     Dosage: 12, 12.2, 12, 12, 12.5, 12.1, 12.4, 12.2, 12.1
     Dates: start: 20011003
  5. NOVANTRONE [Suspect]
     Dosage: 12, 12.2, 12, 12, 12.5, 12.1, 12.4, 12.2, 12.1
     Dates: start: 20020109
  6. NOVANTRONE [Suspect]
     Dosage: 12, 12.2, 12, 12, 12.5, 12.1, 12.4, 12.2, 12.1
     Dates: start: 20020417
  7. NOVANTRONE [Suspect]
     Dosage: 12, 12.2, 12, 12, 12.5, 12.1, 12.4, 12.2, 12.1
     Dates: start: 20020717
  8. NOVANTRONE [Suspect]
     Dosage: 12, 12.2, 12, 12, 12.5, 12.1, 12.4, 12.2, 12.1
     Dates: start: 20021022
  9. NOVANTRONE [Suspect]
     Dosage: 12, 12.2, 12, 12, 12.5, 12.1, 12.4, 12.2, 12.1
     Dates: start: 20030122
  10. PREDNISONE /00044701/ [Concomitant]
  11. LORAZEPAM [Concomitant]
  12. CLONAZEPAM [Concomitant]
  13. FLUOXETINE HYDROCHLORIDE [Concomitant]
  14. BACLOFEN [Concomitant]
  15. BACTRIM [Concomitant]
  16. MIRTAZAPINE [Concomitant]
  17. DIAZEPAM [Concomitant]
  18. TYLOX /00446701/ [Concomitant]
  19. OXYCODONE HYDROCHLORIDE [Concomitant]
  20. MODAFINIL [Concomitant]
  21. GABAPENTIN [Concomitant]
  22. AZATHIOPRINE [Concomitant]
  23. AMANTADINE /00055901/ [Concomitant]
  24. SPIRONOLACTONE [Concomitant]
  25. FUROSEMIDE /00032601/ [Concomitant]
  26. POTASSIUM CHLORIDE [Concomitant]
  27. ALENDRONATE SODIUM [Concomitant]
  28. CALCITONIN-SALMON [Concomitant]
  29. SALBUTAMOL SULFATE [Concomitant]
  30. INTERFERON BETA [Concomitant]
  31. CYANOCOBALAMIN [Concomitant]
  32. TESTOSTERONE CIPIONATE [Concomitant]
  33. SENNA ALEXANDRINA [Concomitant]
  34. TOCOPHEROL /00110501/ [Concomitant]
  35. COTYLENOL [Concomitant]

REACTIONS (14)
  - BLOOD PRESSURE IMMEASURABLE [None]
  - BRONCHIAL SECRETION RETENTION [None]
  - CARDIAC DISORDER [None]
  - DISCOMFORT [None]
  - DYSPNOEA [None]
  - EJECTION FRACTION DECREASED [None]
  - MALAISE [None]
  - MUSCLE SPASMS [None]
  - NASAL MUCOSAL DISORDER [None]
  - PAIN IN EXTREMITY [None]
  - PULMONARY OEDEMA [None]
  - PULSE ABSENT [None]
  - SKIN DISCOLOURATION [None]
  - VOMITING [None]
